FAERS Safety Report 5421191-X (Version None)
Quarter: 2007Q3

REPORT INFORMATION
  Report Type: 
  Country: None (occurrence: None)
  Receive Date: 20070816
  Receipt Date: 20070803
  Transmission Date: 20080115
  Serious: Yes (Death, Hospitalization)
  Sender: FDA-Public Use
  Company Number: 2007US001851

PATIENT
  Age: 57 Year
  Sex: Female

DRUGS (1)
  1. PROGRAF [Suspect]
     Indication: RASH
     Dosage: PRN, TOPICAL
     Route: 061

REACTIONS (1)
  - NON-HODGKIN'S LYMPHOMA [None]
